FAERS Safety Report 5132147-9 (Version None)
Quarter: 2006Q4

REPORT INFORMATION
  Report Type: 
  Country: None (occurrence: None)
  Receive Date: 20061017
  Receipt Date: 20061005
  Transmission Date: 20070319
  Serious: Yes (Hospitalization)
  Sender: FDA-Public Use
  Company Number: RB-4122-2006

PATIENT
  Age: 50 Year
  Sex: Female
  Weight: 75.2971 kg

DRUGS (25)
  1. SUBOXONE [Suspect]
     Indication: DRUG DEPENDENCE
     Dosage: 48 MG X/DAY SUBLINGUAL ; 8MG QID SUBLINGUAL ; 56MG X/DAY SUBLINGUAL ; 8MG QID SUBLINGUAL ; 8MG TID S
     Route: 060
     Dates: start: 20051025, end: 20051025
  2. SUBOXONE [Suspect]
     Indication: PAIN
     Dosage: 48 MG X/DAY SUBLINGUAL ; 8MG QID SUBLINGUAL ; 56MG X/DAY SUBLINGUAL ; 8MG QID SUBLINGUAL ; 8MG TID S
     Route: 060
     Dates: start: 20051025, end: 20051025
  3. SUBOXONE [Suspect]
     Indication: DRUG DEPENDENCE
     Dosage: 48 MG X/DAY SUBLINGUAL ; 8MG QID SUBLINGUAL ; 56MG X/DAY SUBLINGUAL ; 8MG QID SUBLINGUAL ; 8MG TID S
     Route: 060
     Dates: start: 20051026, end: 20051106
  4. SUBOXONE [Suspect]
     Indication: PAIN
     Dosage: 48 MG X/DAY SUBLINGUAL ; 8MG QID SUBLINGUAL ; 56MG X/DAY SUBLINGUAL ; 8MG QID SUBLINGUAL ; 8MG TID S
     Route: 060
     Dates: start: 20051026, end: 20051106
  5. SUBOXONE [Suspect]
     Indication: DRUG DEPENDENCE
     Dosage: 48 MG X/DAY SUBLINGUAL ; 8MG QID SUBLINGUAL ; 56MG X/DAY SUBLINGUAL ; 8MG QID SUBLINGUAL ; 8MG TID S
     Route: 060
     Dates: start: 20051107, end: 20051107
  6. SUBOXONE [Suspect]
     Indication: PAIN
     Dosage: 48 MG X/DAY SUBLINGUAL ; 8MG QID SUBLINGUAL ; 56MG X/DAY SUBLINGUAL ; 8MG QID SUBLINGUAL ; 8MG TID S
     Route: 060
     Dates: start: 20051107, end: 20051107
  7. SUBOXONE [Suspect]
     Indication: DRUG DEPENDENCE
     Dosage: 48 MG X/DAY SUBLINGUAL ; 8MG QID SUBLINGUAL ; 56MG X/DAY SUBLINGUAL ; 8MG QID SUBLINGUAL ; 8MG TID S
     Route: 060
     Dates: start: 20051108, end: 20051218
  8. SUBOXONE [Suspect]
     Indication: PAIN
     Dosage: 48 MG X/DAY SUBLINGUAL ; 8MG QID SUBLINGUAL ; 56MG X/DAY SUBLINGUAL ; 8MG QID SUBLINGUAL ; 8MG TID S
     Route: 060
     Dates: start: 20051108, end: 20051218
  9. SUBOXONE [Suspect]
     Indication: DRUG DEPENDENCE
     Dosage: 48 MG X/DAY SUBLINGUAL ; 8MG QID SUBLINGUAL ; 56MG X/DAY SUBLINGUAL ; 8MG QID SUBLINGUAL ; 8MG TID S
     Route: 060
     Dates: start: 20051219, end: 20060208
  10. SUBOXONE [Suspect]
     Indication: PAIN
     Dosage: 48 MG X/DAY SUBLINGUAL ; 8MG QID SUBLINGUAL ; 56MG X/DAY SUBLINGUAL ; 8MG QID SUBLINGUAL ; 8MG TID S
     Route: 060
     Dates: start: 20051219, end: 20060208
  11. SUBOXONE [Suspect]
     Indication: DRUG DEPENDENCE
     Dosage: 48 MG X/DAY SUBLINGUAL ; 8MG QID SUBLINGUAL ; 56MG X/DAY SUBLINGUAL ; 8MG QID SUBLINGUAL ; 8MG TID S
     Route: 060
     Dates: start: 20060209, end: 20060608
  12. SUBOXONE [Suspect]
     Indication: PAIN
     Dosage: 48 MG X/DAY SUBLINGUAL ; 8MG QID SUBLINGUAL ; 56MG X/DAY SUBLINGUAL ; 8MG QID SUBLINGUAL ; 8MG TID S
     Route: 060
     Dates: start: 20060209, end: 20060608
  13. SUBOXONE [Suspect]
     Indication: DRUG DEPENDENCE
     Dosage: 48 MG X/DAY SUBLINGUAL ; 8MG QID SUBLINGUAL ; 56MG X/DAY SUBLINGUAL ; 8MG QID SUBLINGUAL ; 8MG TID S
     Route: 060
     Dates: start: 20060630, end: 20060630
  14. SUBOXONE [Suspect]
     Indication: PAIN
     Dosage: 48 MG X/DAY SUBLINGUAL ; 8MG QID SUBLINGUAL ; 56MG X/DAY SUBLINGUAL ; 8MG QID SUBLINGUAL ; 8MG TID S
     Route: 060
     Dates: start: 20060630, end: 20060630
  15. BRONCHILATOR [Concomitant]
  16. AMINO ACIDS NOS [Concomitant]
  17. OMEGA 3 [Concomitant]
  18. PREDNISONE TAB [Concomitant]
  19. TRAZODONE HCL [Concomitant]
  20. ATIVAN [Concomitant]
  21. CLONIDINE [Concomitant]
  22. ZOLOFT [Concomitant]
  23. WELLBUTRIN [Concomitant]
  24. RITALIN [Concomitant]
  25. ADVAIR HFA [Concomitant]

REACTIONS (10)
  - ARTHRALGIA [None]
  - ASTHMA [None]
  - CELLULITIS [None]
  - COLITIS [None]
  - CONDITION AGGRAVATED [None]
  - FIBROMYALGIA [None]
  - FLUID RETENTION [None]
  - OVERDOSE [None]
  - PHYSICAL ABUSE [None]
  - PLEURITIC PAIN [None]
